FAERS Safety Report 10746163 (Version 3)
Quarter: 2015Q2

REPORT INFORMATION
  Report Type: Spontaneous
  Country: US (occurrence: US)
  Receive Date: 20150128
  Receipt Date: 20150521
  Transmission Date: 20150821
  Serious: Yes (Hospitalization, Disabling, Other)
  Sender: FDA-Public Use
  Company Number: US-PFIZER INC-2015031459

PATIENT
  Age: 50 Year
  Sex: Male
  Weight: 84 kg

DRUGS (6)
  1. HYDROCODONE, PARACETAMOL [Concomitant]
     Indication: ARTHRALGIA
     Dosage: 750 MG, 1-2 TAB EVERY 6 HOURS AS NEEDED
  2. EFFEXOR XR [Suspect]
     Active Substance: VENLAFAXINE HYDROCHLORIDE
     Indication: DEPRESSION
     Dosage: 300 MG, 1X/DAY (IN THE MORNING)
     Route: 048
  3. DIAZEPAM. [Concomitant]
     Active Substance: DIAZEPAM
     Indication: ANXIETY
     Dosage: 10 MG, 2X/DAY
  4. EFFEXOR XR [Suspect]
     Active Substance: VENLAFAXINE HYDROCHLORIDE
     Indication: ANXIETY
  5. DIAZEPAM. [Concomitant]
     Active Substance: DIAZEPAM
     Indication: PANIC ATTACK
  6. METOPROLOL SUCCINATE. [Concomitant]
     Active Substance: METOPROLOL SUCCINATE
     Indication: HYPERTENSION
     Dosage: 100 MG, DAILY

REACTIONS (12)
  - Fall [Recovered/Resolved with Sequelae]
  - Head injury [Unknown]
  - Balance disorder [Not Recovered/Not Resolved]
  - Ear injury [Not Recovered/Not Resolved]
  - Haemorrhage intracranial [Unknown]
  - Amnesia [Unknown]
  - Craniocerebral injury [Recovered/Resolved with Sequelae]
  - Deafness unilateral [Not Recovered/Not Resolved]
  - Abasia [Unknown]
  - Dizziness [Not Recovered/Not Resolved]
  - Blindness unilateral [Unknown]
  - Coma [Recovered/Resolved with Sequelae]

NARRATIVE: CASE EVENT DATE: 20101010
